FAERS Safety Report 10079946 (Version 1)
Quarter: 2014Q2

REPORT INFORMATION
  Report Type: Spontaneous
  Country: US (occurrence: US)
  Receive Date: 20140415
  Receipt Date: 20140415
  Transmission Date: 20141212
  Serious: Yes (Hospitalization)
  Sender: FDA-Public Use
  Company Number: GXBR2014US001047

PATIENT
  Age: 79 Year
  Sex: Female
  Weight: 60.32 kg

DRUGS (9)
  1. METHIMAZOLE [Suspect]
     Indication: HYPERTHYROIDISM
     Dosage: UNK DF, UNK
     Dates: start: 201310, end: 20131231
  2. CALCIUM + D3                       /00944201/ [Suspect]
     Dosage: CALCIUM 1200MG/D3 1000IU, QD
  3. VITAMIN D3 [Suspect]
     Dosage: 2000 U, QD
  4. MAGNESIUM [Suspect]
     Dosage: 400 MG, QD
  5. MULTI-VIT [Concomitant]
     Dosage: UNK DF, QD
  6. NAPROXEN [Concomitant]
     Indication: ARTHRITIS
     Dosage: UNK DF, QD
  7. TURMERIC [Concomitant]
     Dosage: UNK DF, UNK
  8. GINGER [Concomitant]
     Dosage: UNK DF, UNK
  9. CINNAMON [Concomitant]
     Dosage: UNK DF, UNK

REACTIONS (10)
  - Renal failure [Recovered/Resolved]
  - Malaise [Unknown]
  - Fatigue [Unknown]
  - Confusional state [Unknown]
  - Pruritus [Unknown]
  - Decreased appetite [Unknown]
  - Hypophagia [Unknown]
  - Fluid intake reduced [Unknown]
  - Dehydration [Unknown]
  - Weight decreased [Unknown]
